FAERS Safety Report 18611398 (Version 1)
Quarter: 2020Q4

REPORT INFORMATION
  Report Type: Spontaneous
  Country: US (occurrence: US)
  Receive Date: 20201214
  Receipt Date: 20201214
  Transmission Date: 20210114
  Serious: No
  Sender: FDA-Public Use
  Company Number: US-PFIZER INC-2020490289

PATIENT
  Age: 31 Year
  Sex: Female
  Weight: 120.2 kg

DRUGS (1)
  1. CHANTIX [Suspect]
     Active Substance: VARENICLINE TARTRATE
     Indication: SMOKING CESSATION THERAPY
     Dosage: 2 DF, DAILY [SHE WAS TAKING 2 A DAY BY MOUTH AT END]
     Route: 048
     Dates: start: 201305

REACTIONS (1)
  - Chronic obstructive pulmonary disease [Unknown]
